FAERS Safety Report 25894697 (Version 2)
Quarter: 2025Q4

REPORT INFORMATION
  Report Type: Spontaneous
  Country: JP (occurrence: JP)
  Receive Date: 20251008
  Receipt Date: 20251111
  Transmission Date: 20260117
  Serious: Yes (Death, Other)
  Sender: UNITED THERAPEUTICS
  Company Number: JP-UNITED THERAPEUTICS-UNT-2025-034611

PATIENT
  Age: 84 Year
  Sex: Male

DRUGS (1)
  1. TREPROSTINIL [Suspect]
     Active Substance: TREPROSTINIL
     Indication: Product used for unknown indication
     Dosage: UNK
     Dates: start: 20250628, end: 20251003

REACTIONS (2)
  - Combined pulmonary fibrosis and emphysema [Fatal]
  - Condition aggravated [Fatal]

NARRATIVE: CASE EVENT DATE: 20250101
